FAERS Safety Report 8711794 (Version 2)
Quarter: 2012Q4

REPORT INFORMATION
  Report Type: 
  Country: US (occurrence: US)
  Receive Date: 20120807
  Receipt Date: 20121129
  Transmission Date: 20130627
  Serious: Yes (Hospitalization)
  Sender: FDA-Public Use
  Company Number: US-009507513-1208USA000212

PATIENT

DRUGS (1)
  1. NUVARING [Suspect]
     Indication: CONTRACEPTION
     Dosage: UNK
     Route: 067
     Dates: start: 20100603, end: 20101107

REACTIONS (6)
  - Papilloedema [Unknown]
  - Cerebral venous thrombosis [Unknown]
  - Anxiety [Unknown]
  - Migraine [Unknown]
  - Cranial nerve disorder [Unknown]
  - Benign intracranial hypertension [Unknown]
